FAERS Safety Report 15438615 (Version 1)
Quarter: 2018Q3

REPORT INFORMATION
  Report Type: Spontaneous
  Country: US (occurrence: US)
  Receive Date: 20180924
  Receipt Date: 20180924
  Transmission Date: 20181010
  Serious: No
  Sender: FDA-Public Use
  Company Number: None

PATIENT
  Age: 53 Year
  Sex: Female
  Weight: 59.87 kg

DRUGS (5)
  1. NUCYNTA [Suspect]
     Active Substance: TAPENTADOL HYDROCHLORIDE
     Indication: ROAD TRAFFIC ACCIDENT
     Dosage: ?          QUANTITY:90 DF DOSAGE FORM;?
     Route: 048
     Dates: start: 201310, end: 201807
  2. NUCYNTA [Suspect]
     Active Substance: TAPENTADOL HYDROCHLORIDE
     Indication: MUSCLE DISORDER
  3. DEPRAKOTE [Concomitant]
  4. NUCYNTA [Suspect]
     Active Substance: TAPENTADOL HYDROCHLORIDE
     Indication: NECK PAIN
  5. PROZAC [Concomitant]
     Active Substance: FLUOXETINE HYDROCHLORIDE

REACTIONS (20)
  - Feeling abnormal [None]
  - Amnesia [None]
  - Muscle twitching [None]
  - Diarrhoea [None]
  - Insomnia [None]
  - Dyspnoea [None]
  - Breast cancer [None]
  - Withdrawal syndrome [None]
  - Abdominal pain upper [None]
  - Impaired driving ability [None]
  - Pain [None]
  - Drug dependence [None]
  - Hypersomnia [None]
  - Confusional state [None]
  - Suicidal ideation [None]
  - Incoherent [None]
  - Mydriasis [None]
  - Vomiting [None]
  - Chills [None]
  - Hyperhidrosis [None]
